FAERS Safety Report 19569804 (Version 2)
Quarter: 2021Q3

REPORT INFORMATION
  Report Type: Spontaneous
  Country: US (occurrence: US)
  Receive Date: 20210716
  Receipt Date: 20210909
  Transmission Date: 20211014
  Serious: No
  Sender: FDA-Public Use
  Company Number: US-SUNOVION-2021SUN002359

PATIENT
  Sex: Male

DRUGS (1)
  1. LONHALA MAGNAIR [Suspect]
     Active Substance: GLYCOPYRROLATE
     Dosage: 25 ?G ML
     Route: 055

REACTIONS (5)
  - Musculoskeletal discomfort [Unknown]
  - Device issue [Unknown]
  - Total lung capacity abnormal [Unknown]
  - Device leakage [Unknown]
  - Device power source issue [Unknown]
